FAERS Safety Report 7769710-2 (Version None)
Quarter: 2011Q3

REPORT INFORMATION
  Report Type: 
  Country: None (occurrence: None)
  Receive Date: 20110922
  Receipt Date: 20101227
  Transmission Date: 20111222
  Serious: No
  Sender: FDA-Public Use
  Company Number: US-ASTRAZENECA-2010SE60941

PATIENT
  Age: 49 Year
  Sex: Male
  Weight: 95.3 kg

DRUGS (5)
  1. SEROQUEL [Suspect]
     Indication: DEPRESSION
     Route: 048
     Dates: start: 20100101
  2. KLONOPIN [Concomitant]
     Route: 048
  3. CELEXA [Concomitant]
     Route: 048
  4. REMERON [Concomitant]
     Route: 048
  5. SEROQUEL [Suspect]
     Indication: SLEEP DISORDER
     Route: 048
     Dates: start: 20100101

REACTIONS (2)
  - WEIGHT INCREASED [None]
  - ERECTILE DYSFUNCTION [None]
